FAERS Safety Report 5105851-6 (Version None)
Quarter: 2006Q3

REPORT INFORMATION
  Report Type: 
  Country: None (occurrence: None)
  Receive Date: 20060915
  Receipt Date: 20060913
  Transmission Date: 20061208
  Serious: Yes (Other)
  Sender: FDA-Public Use
  Company Number: CA-GLAXOSMITHKLINE-A0620098A

PATIENT
  Sex: Female

DRUGS (1)
  1. SEREVENT [Suspect]
     Indication: EMPHYSEMA
     Route: 055

REACTIONS (3)
  - DIZZINESS [None]
  - MEDICATION RESIDUE [None]
  - SYNCOPE [None]
